FAERS Safety Report 4916373-7 (Version None)
Quarter: 2006Q1

REPORT INFORMATION
  Report Type: 
  Country: None (occurrence: None)
  Receive Date: 20060217
  Receipt Date: 20030605
  Transmission Date: 20060701
  Serious: Yes (Hospitalization, Disabling)
  Sender: FDA-Public Use
  Company Number: US-MERCK-0306USA00795

PATIENT
  Age: 70 Year
  Sex: Female
  Weight: 90 kg

DRUGS (13)
  1. VIOXX [Suspect]
     Indication: ARTHRITIS
     Route: 048
     Dates: start: 20000214, end: 20020801
  2. LEVOTHROID [Concomitant]
     Route: 065
  3. DIOVAN [Concomitant]
     Route: 065
  4. NIACIN [Concomitant]
     Route: 065
  5. PREMPRO [Concomitant]
     Route: 065
  6. TRICOR [Concomitant]
     Route: 065
  7. OS-CAL D [Concomitant]
     Route: 065
  8. POTASSIUM (UNSPECIFIED) [Concomitant]
     Route: 048
  9. TYLENOL [Concomitant]
     Route: 065
  10. AMBIEN [Concomitant]
     Route: 065
  11. DULCOLAX [Concomitant]
     Route: 065
  12. FLEXERIL [Concomitant]
     Route: 065
  13. DARVOCET-N 50 [Concomitant]
     Route: 065

REACTIONS (36)
  - ANAEMIA [None]
  - ANHEDONIA [None]
  - ARTHRALGIA [None]
  - CARDIOMEGALY [None]
  - CATARACT [None]
  - CHEST DISCOMFORT [None]
  - CHEST PAIN [None]
  - DEEP VEIN THROMBOSIS [None]
  - DEMENTIA [None]
  - DEPRESSION [None]
  - DEPRESSIVE SYMPTOM [None]
  - DERMATITIS [None]
  - DYSPNOEA [None]
  - DYSPNOEA EXERTIONAL [None]
  - GASTRIC DISORDER [None]
  - HAEMATOMA [None]
  - HYPERTENSION [None]
  - HYPERTONIC BLADDER [None]
  - HYPOTHYROIDISM [None]
  - INTERMITTENT CLAUDICATION [None]
  - INTERVERTEBRAL DISC DEGENERATION [None]
  - LUMBAR RADICULOPATHY [None]
  - LUMBAR SPINAL STENOSIS [None]
  - MYALGIA [None]
  - NERVE COMPRESSION [None]
  - OSTEOARTHRITIS [None]
  - OSTEOPOROSIS [None]
  - RASH [None]
  - SCIATICA [None]
  - SEROMA [None]
  - SKIN ULCER [None]
  - SPINAL CLAUDICATION [None]
  - SPINAL COMPRESSION FRACTURE [None]
  - THROMBOPHLEBITIS SUPERFICIAL [None]
  - VENOUS INSUFFICIENCY [None]
  - VERTIGO POSITIONAL [None]
